FAERS Safety Report 25468996 (Version 1)
Quarter: 2025Q2

REPORT INFORMATION
  Report Type: Spontaneous
  Country: US (occurrence: US)
  Receive Date: 20250623
  Receipt Date: 20250623
  Transmission Date: 20250716
  Serious: No
  Sender: KYOWA
  Company Number: US-KYOWAKIRIN-2025KK011587

PATIENT

DRUGS (1)
  1. TOREMIFENE [Suspect]
     Active Substance: TOREMIFENE
     Indication: Adenoid cystic carcinoma of salivary gland
     Dosage: 60 MG, QD
     Route: 065

REACTIONS (1)
  - Off label use [Unknown]
